FAERS Safety Report 15582393 (Version 1)
Quarter: 2018Q4

REPORT INFORMATION
  Report Type: Spontaneous
  Country: FR (occurrence: FR)
  Receive Date: 20181102
  Receipt Date: 20181102
  Transmission Date: 20190205
  Serious: Yes (Hospitalization)
  Sender: FDA-Public Use
  Company Number: FR-TEVA-2018-FR-971003

PATIENT
  Age: 78 Year
  Sex: Male
  Weight: 69.6 kg

DRUGS (11)
  1. AMOXICILLINE [Suspect]
     Active Substance: AMOXICILLIN
     Indication: TONSILLITIS
     Dosage: UNKNOWN
     Route: 048
     Dates: start: 20160927, end: 20161002
  2. INSPRA [Concomitant]
     Active Substance: EPLERENONE
     Dosage: 25 MILLIGRAM DAILY; 25 MG, QD
  3. IXPRIM [Concomitant]
     Active Substance: ACETAMINOPHEN\TRAMADOL HYDROCHLORIDE
  4. AMIODARONE [Concomitant]
     Active Substance: AMIODARONE
     Dosage: .5 DOSAGE FORMS DAILY; 0.5 UNK, QD
  5. TAMSULOSINA [Suspect]
     Active Substance: TAMSULOSIN HYDROCHLORIDE
     Indication: TONSILLITIS
     Dosage: UNKNOWN
     Route: 048
     Dates: start: 20160927, end: 20161003
  6. SURBRONC [Suspect]
     Active Substance: AMBROXOL HYDROCHLORIDE
     Indication: TONSILLITIS
     Dosage: UNKNOWN
     Route: 048
     Dates: start: 20160927, end: 20161003
  7. SYMBICORT [Concomitant]
     Active Substance: BUDESONIDE\FORMOTEROL FUMARATE DIHYDRATE
     Dosage: UNK
  8. MAXILASE [Suspect]
     Active Substance: PANCRELIPASE
     Indication: TONSILLITIS
     Dosage: UNKNOWN
     Route: 048
     Dates: start: 20160927, end: 20161003
  9. SIMVASTATIN. [Concomitant]
     Active Substance: SIMVASTATIN
     Dosage: 20 MILLIGRAM DAILY; 20 MG, QD
  10. RHINOFLUIMUCIL [Suspect]
     Active Substance: ACETYLCYSTEINE\BENZALKONIUM CHLORIDE\TUAMINOHEPTANE SULFATE
     Indication: TONSILLITIS
     Route: 045
     Dates: start: 20160927, end: 20161003
  11. PERINDOPRIL [Concomitant]
     Active Substance: PERINDOPRIL
     Dosage: 1 DOSAGE FORMS DAILY; 1 DF, QD

REACTIONS (2)
  - Pruritus [Recovered/Resolved]
  - Rash maculo-papular [Recovered/Resolved]

NARRATIVE: CASE EVENT DATE: 20160929
